FAERS Safety Report 5866246-0 (Version None)
Quarter: 2008Q3

REPORT INFORMATION
  Report Type: 
  Country: None (occurrence: None)
  Receive Date: 20080829
  Receipt Date: 20080819
  Transmission Date: 20090109
  Serious: Yes (Other)
  Sender: FDA-Public Use
  Company Number: CA-PFIZER INC-2008070389

PATIENT
  Age: 30 Year
  Sex: Male

DRUGS (8)
  1. CHANTIX [Suspect]
     Route: 048
  2. MS CONTIN [Concomitant]
  3. LYRICA [Concomitant]
  4. AMITRIPTYLINE HCL [Concomitant]
  5. EFFEXOR [Concomitant]
  6. METHADONE HCL [Concomitant]
  7. CYMBALTA [Concomitant]
  8. L-TRYPTOPHAN ^AS^ [Concomitant]

REACTIONS (7)
  - DRUG INEFFECTIVE [None]
  - DYSPNOEA [None]
  - ILL-DEFINED DISORDER [None]
  - IRRITABILITY [None]
  - LOSS OF CONSCIOUSNESS [None]
  - PALLOR [None]
  - SOMNOLENCE [None]
